FAERS Safety Report 24028887 (Version 1)
Quarter: 2024Q2

REPORT INFORMATION
  Report Type: Spontaneous
  Country: CN (occurrence: CN)
  Receive Date: 20240628
  Receipt Date: 20240628
  Transmission Date: 20240715
  Serious: Yes (Hospitalization)
  Sender: FDA-Public Use
  Company Number: CN-SA-SAC20240627000255

PATIENT
  Age: 69 Year
  Sex: Male
  Weight: 59 kg

DRUGS (3)
  1. OXALIPLATIN [Suspect]
     Active Substance: OXALIPLATIN
     Indication: Neoplasm
     Dosage: 150 MG, QD
     Route: 041
     Dates: start: 20240607, end: 20240607
  2. CAPECITABINE [Suspect]
     Active Substance: CAPECITABINE
     Indication: Neoplasm
     Dosage: 1 G, BID
     Route: 048
     Dates: start: 20240607, end: 20240620
  3. SINTILIMAB [Suspect]
     Active Substance: SINTILIMAB
     Indication: Neoplasm
     Dosage: 200 MG, QD
     Route: 041
     Dates: start: 20240607, end: 20240607

REACTIONS (2)
  - Breath sounds abnormal [Recovering/Resolving]
  - White blood cell count decreased [Recovered/Resolved]

NARRATIVE: CASE EVENT DATE: 20240611
